FAERS Safety Report 19448419 (Version 1)
Quarter: 2021Q2

REPORT INFORMATION
  Report Type: Report from Study
  Country: AR (occurrence: AR)
  Receive Date: 20210622
  Receipt Date: 20210622
  Transmission Date: 20210717
  Serious: Yes (Other)
  Sender: FDA-Public Use
  Company Number: NVSC2019AR006170

PATIENT
  Age: 35 Year
  Sex: Male

DRUGS (1)
  1. COSENTYX [Suspect]
     Active Substance: SECUKINUMAB
     Indication: ANKYLOSING SPONDYLITIS
     Dosage: 150 MG, QMO
     Route: 058
     Dates: start: 20190706

REACTIONS (7)
  - Arthralgia [Not Recovered/Not Resolved]
  - Tendon injury [Unknown]
  - Spinal pain [Not Recovered/Not Resolved]
  - Pain in extremity [Not Recovered/Not Resolved]
  - Drug ineffective [Unknown]
  - Pain [Not Recovered/Not Resolved]
  - Uveitis [Unknown]

NARRATIVE: CASE EVENT DATE: 202101
